FAERS Safety Report 4503629-5 (Version None)
Quarter: 2004Q4

REPORT INFORMATION
  Report Type: 
  Country: None (occurrence: None)
  Receive Date: 20041115
  Receipt Date: 20041108
  Transmission Date: 20050328
  Serious: Yes (Death)
  Sender: FDA-Public Use
  Company Number: F01200403503

PATIENT
  Age: 69 Year
  Sex: Male

DRUGS (3)
  1. OXALIPLATIN SOLUTION [Suspect]
     Indication: COLORECTAL CANCER METASTATIC
     Route: 042
     Dates: start: 20040907, end: 20040907
  2. IRINOTECAN [Suspect]
     Dates: start: 20040810, end: 20040907
  3. BEVACIZUMAB 5 MG/KG [Suspect]
     Dosage: 5 MG/KG Q2W
     Route: 042
     Dates: start: 20040907, end: 20040907

REACTIONS (1)
  - ROAD TRAFFIC ACCIDENT [None]
